FAERS Safety Report 10284641 (Version 2)
Quarter: 2014Q3

REPORT INFORMATION
  Report Type: Spontaneous
  Country: GB (occurrence: GB)
  Receive Date: 20140708
  Receipt Date: 20140708
  Transmission Date: 20150326
  Serious: Yes (Death)
  Sender: FDA-Public Use
  Company Number: GB-SANOFI-AVENTIS-2012SA037541

PATIENT
  Age: 74 Year
  Sex: Female

DRUGS (2)
  1. CYCLOPHOSPHAMIDE. [Suspect]
     Active Substance: CYCLOPHOSPHAMIDE
     Indication: CHRONIC LYMPHOCYTIC LEUKAEMIA
     Dosage: 6 CYCLES
     Route: 065
     Dates: start: 20100304, end: 20101110
  2. FLUDARABINE PHOSPHATE. [Suspect]
     Active Substance: FLUDARABINE PHOSPHATE
     Indication: CHRONIC LYMPHOCYTIC LEUKAEMIA
     Dosage: 6 CYCLES
     Route: 065
     Dates: start: 20100304, end: 20101110

REACTIONS (11)
  - Pyrexia [Fatal]
  - Epstein-Barr virus infection [Fatal]
  - Splenomegaly [Fatal]
  - Platelet count decreased [Fatal]
  - Serum ferritin increased [Fatal]
  - Blood triglycerides increased [Fatal]
  - Histiocytosis haematophagic [Fatal]
  - Pancytopenia [Fatal]
  - Haemoglobin decreased [Fatal]
  - Blood fibrinogen decreased [Fatal]
  - Neutropenic sepsis [Fatal]

NARRATIVE: CASE EVENT DATE: 20110506
